FAERS Safety Report 24860733 (Version 2)
Quarter: 2025Q3

REPORT INFORMATION
  Report Type: Spontaneous
  Country: US (occurrence: US)
  Receive Date: 20250120
  Receipt Date: 20250820
  Transmission Date: 20251021
  Serious: No
  Sender: BIOGEN
  Company Number: US-BIOGEN-2025BI01297198

PATIENT
  Sex: Male

DRUGS (2)
  1. SKYCLARYS [Suspect]
     Active Substance: OMAVELOXOLONE
     Indication: Friedreich^s ataxia
     Route: 050
     Dates: start: 20230817
  2. SKYCLARYS [Suspect]
     Active Substance: OMAVELOXOLONE
     Route: 050
     Dates: start: 20230814

REACTIONS (6)
  - Gait disturbance [Unknown]
  - Cardiac disorder [Unknown]
  - Atrioventricular block [Unknown]
  - Echocardiogram abnormal [Unknown]
  - Balance disorder [Unknown]
  - Fatigue [Unknown]
